FAERS Safety Report 22145758 (Version 2)
Quarter: 2023Q2

REPORT INFORMATION
  Report Type: Spontaneous
  Country: US (occurrence: None)
  Receive Date: 20230328
  Receipt Date: 20230504
  Transmission Date: 20230721
  Serious: Yes (Other)
  Sender: FDA-Public Use
  Company Number: US-ROCHE-3306631

PATIENT
  Age: 73 Year
  Sex: Female
  Weight: 68 kg

DRUGS (29)
  1. ACTEMRA [Suspect]
     Active Substance: TOCILIZUMAB
     Indication: Giant cell arteritis
     Dosage: 162MG/0.9ML
     Route: 058
     Dates: start: 20230209
  2. ACTEMRA [Suspect]
     Active Substance: TOCILIZUMAB
  3. ACTEMRA [Suspect]
     Active Substance: TOCILIZUMAB
  4. DELTASONE [Concomitant]
     Active Substance: PREDNISONE
     Dosage: 42 TABS
     Route: 048
  5. IBUPROFEN [Concomitant]
     Active Substance: IBUPROFEN
  6. ROBAXIN [Concomitant]
     Active Substance: METHOCARBAMOL
     Route: 048
  7. SPIRIVA RESPIMAT [Concomitant]
     Active Substance: TIOTROPIUM BROMIDE
  8. ATROVENT [Concomitant]
     Active Substance: IPRATROPIUM BROMIDE
  9. ALBUTEROL [Concomitant]
     Active Substance: ALBUTEROL
  10. ATORVASTATIN [Concomitant]
     Active Substance: ATORVASTATIN
  11. GLUCOPHAGE [Concomitant]
     Active Substance: METFORMIN HYDROCHLORIDE
  12. ALDACTONE [Concomitant]
     Active Substance: SPIRONOLACTONE
  13. TENORMIN [Concomitant]
     Active Substance: ATENOLOL
  14. HYDREA [Concomitant]
     Active Substance: HYDROXYUREA
  15. PROVENTIL [Concomitant]
     Active Substance: ALBUTEROL
  16. OXYGEN [Concomitant]
     Active Substance: OXYGEN
  17. IRON [Concomitant]
     Active Substance: IRON
  18. XYZAL [Concomitant]
     Active Substance: LEVOCETIRIZINE DIHYDROCHLORIDE
  19. KENALOG [Concomitant]
     Active Substance: TRIAMCINOLONE ACETONIDE
  20. ESTRACE [Concomitant]
     Active Substance: ESTRADIOL
  21. VITAMIN D3 [Concomitant]
     Active Substance: CHOLECALCIFEROL
  22. CALCIUM CARBONATE [Concomitant]
     Active Substance: CALCIUM CARBONATE
  23. ASPIRIN [Concomitant]
     Active Substance: ASPIRIN
  24. FLONASE [Concomitant]
     Active Substance: FLUTICASONE PROPIONATE
  25. FISH OIL [Concomitant]
     Active Substance: FISH OIL
  26. SYMBICORT [Concomitant]
     Active Substance: BUDESONIDE\FORMOTEROL FUMARATE DIHYDRATE
  27. FLUTICASONE FUROATE\VILANTEROL TRIFENATATE [Concomitant]
     Active Substance: FLUTICASONE FUROATE\VILANTEROL TRIFENATATE
  28. TORADOL [Concomitant]
     Active Substance: KETOROLAC TROMETHAMINE
  29. MINIPRESS [Concomitant]
     Active Substance: PRAZOSIN HYDROCHLORIDE

REACTIONS (5)
  - Helicobacter infection [Recovered/Resolved with Sequelae]
  - Pain [Unknown]
  - Back pain [Unknown]
  - Neck pain [Unknown]
  - Headache [Unknown]
